FAERS Safety Report 4824917-9 (Version None)
Quarter: 2005Q4

REPORT INFORMATION
  Report Type: 
  Country: None (occurrence: None)
  Receive Date: 20051012
  Receipt Date: 20050614
  Transmission Date: 20060501
  Serious: No
  Sender: FDA-Public Use
  Company Number: 2005S1000127

PATIENT
  Age: 60 Year
  Sex: 0
  Weight: 106.8 kg

DRUGS (12)
  1. CUBICIN [Suspect]
     Indication: OSTEOMYELITIS
     Dosage: Q24H; IV
     Route: 042
     Dates: start: 20050401, end: 20050609
  2. CUBICIN [Suspect]
     Indication: STAPHYLOCOCCAL BACTERAEMIA
     Dosage: Q24H; IV
     Route: 042
     Dates: start: 20050401, end: 20050609
  3. REGULAR INSULIN [Concomitant]
  4. METFORMIN [Concomitant]
  5. GLUCOTROL [Concomitant]
  6. NEURONTIN [Concomitant]
  7. AMITRIPTYLINE HCL [Concomitant]
  8. RESTORIL [Concomitant]
  9. VASOTEC [Concomitant]
  10. CYTOMEL [Concomitant]
  11. LIPITOR [Concomitant]
  12. LEVAQUIN [Concomitant]

REACTIONS (3)
  - BLOOD GLUCOSE DECREASED [None]
  - BLOOD GLUCOSE INCREASED [None]
  - PYREXIA [None]
